FAERS Safety Report 8912392 (Version 1)
Quarter: 2012Q4

REPORT INFORMATION
  Report Type: 
  Country: US (occurrence: US)
  Receive Date: 20121116
  Receipt Date: 20121116
  Transmission Date: 20130627
  Serious: Yes (Hospitalization)
  Sender: FDA-Public Use
  Company Number: US-PFIZER INC-2012284510

PATIENT
  Age: 63 Year
  Sex: Female
  Weight: 96.69 kg

DRUGS (5)
  1. ADRIAMYCIN [Suspect]
     Indication: CLL
     Dosage: 40 mg/m2, 1x/day
     Route: 042
     Dates: start: 20120702, end: 20120702
  2. PREDNISONE [Suspect]
     Indication: CLL
     Dosage: 100 mg, 1x/day
     Route: 048
     Dates: start: 20120702, end: 20120707
  3. RITUXAN [Suspect]
     Indication: CLL
     Dosage: 375 mg/m2
     Route: 042
     Dates: start: 20120702, end: 20120703
  4. ONCOVIN [Suspect]
     Indication: CLL
     Dosage: 2 mg, 1x/day
     Route: 042
     Dates: start: 20120702, end: 20120702
  5. CYTOXAN [Suspect]
     Indication: CLL
     Dosage: 1212 mg, 1x/day
     Route: 042
     Dates: start: 20120702, end: 20120702

REACTIONS (2)
  - Pyrexia [Recovered/Resolved]
  - Dehydration [Recovered/Resolved]
